FAERS Safety Report 25786966 (Version 1)
Quarter: 2025Q3

REPORT INFORMATION
  Report Type: Spontaneous
  Country: US (occurrence: US)
  Receive Date: 20250910
  Receipt Date: 20250910
  Transmission Date: 20251021
  Serious: No
  Sender: ELI LILLY AND COMPANY
  Company Number: US-ELI_LILLY_AND_COMPANY-US202509007742

PATIENT
  Age: 69 Year
  Sex: Male

DRUGS (2)
  1. TRULICITY [Suspect]
     Active Substance: DULAGLUTIDE
     Indication: Diabetes mellitus
     Route: 058
     Dates: start: 2023
  2. TRULICITY [Suspect]
     Active Substance: DULAGLUTIDE
     Indication: Glycosylated haemoglobin increased
     Route: 058
     Dates: start: 2023

REACTIONS (5)
  - Amnesia [Recovering/Resolving]
  - Dehydration [Recovering/Resolving]
  - Drug ineffective [Recovering/Resolving]
  - Glycosylated haemoglobin increased [Recovering/Resolving]
  - Blood glucose increased [Recovering/Resolving]
